FAERS Safety Report 8473719-3 (Version None)
Quarter: 2012Q2

REPORT INFORMATION
  Report Type: 
  Country: None (occurrence: None)
  Receive Date: 20120628
  Receipt Date: 20111117
  Transmission Date: 20120825
  Serious: Yes (Other)
  Sender: FDA-Public Use
  Company Number: US-MYLANLABS-2011S1020081

PATIENT
  Age: 33 Year
  Sex: Male
  Weight: 67.13 kg

DRUGS (12)
  1. SEROQUEL [Concomitant]
     Dosage: 300MG TABLETS
  2. NEXIUM [Concomitant]
  3. DOCUSATE [Concomitant]
  4. PROPRANOLOL [Concomitant]
  5. TANDEM PLUS [Concomitant]
  6. CLOZAPINE [Suspect]
     Indication: SCHIZOPHRENIA
     Route: 048
     Dates: end: 20110915
  7. AMLODIPINE [Concomitant]
  8. RISPERDAL CONSTA [Concomitant]
     Dosage: IN A 2CC SYRINGE
  9. OXCARBAZEPINE [Concomitant]
     Dosage: 300MG TABLETS, (2) QAM AND (3) HS
  10. BENZTROPINE MESYLATE [Concomitant]
  11. CLONAZEPAM [Concomitant]
     Dosage: 1 MG BID, 2MG HS
  12. LISINOPRIL [Concomitant]

REACTIONS (2)
  - GRANULOCYTOPENIA [None]
  - LEUKOPENIA [None]
